FAERS Safety Report 6831970-X (Version None)
Quarter: 2010Q3

REPORT INFORMATION
  Report Type: 
  Country: None (occurrence: None)
  Receive Date: 20100712
  Receipt Date: 20100311
  Transmission Date: 20110219
  Serious: No
  Sender: FDA-Public Use
  Company Number: US-TYCO HEALTHCARE/MALLINCKRODT-T201000806

PATIENT
  Sex: Female
  Weight: 70.295 kg

DRUGS (8)
  1. OXYCODONE HCL AND ACETAMINOPHEN [Suspect]
     Indication: BACK INJURY
     Dosage: Q4H
     Route: 048
     Dates: start: 20100227
  2. METFORMIN [Concomitant]
     Indication: POLYCYSTIC OVARIES
     Dosage: 500 MG, BID
  3. EFFEXOR XR [Concomitant]
     Indication: DEPRESSION
     Dosage: 300 MG, QD
  4. EFFEXOR XR [Concomitant]
     Indication: ANXIETY
  5. SEROQUEL [Concomitant]
     Indication: SLEEP DISORDER
     Dosage: UNK
  6. LISINOPRIL [Concomitant]
     Indication: BLOOD PRESSURE INCREASED
     Dosage: 10 MG, QD
  7. ESTRADIOL [Concomitant]
     Indication: HYSTERECTOMY
     Dosage: UNK
  8. STEROID INJECTIONS [Concomitant]

REACTIONS (2)
  - INADEQUATE ANALGESIA [None]
  - PRODUCT QUALITY ISSUE [None]
